FAERS Safety Report 6207363-5 (Version None)
Quarter: 2009Q2

REPORT INFORMATION
  Report Type: 
  Country: None (occurrence: None)
  Receive Date: 20090526
  Receipt Date: 20090513
  Transmission Date: 20091009
  Serious: Yes (Other)
  Sender: FDA-Public Use
  Company Number: CHPA2009US11429

PATIENT
  Age: 73 Year
  Sex: Male

DRUGS (1)
  1. MAALOX MS TOTAL STOMACH RELIEF (NCH) (BISMOUTH SUBSALICYLATE) SUSPENSI [Suspect]
     Indication: ABDOMINAL PAIN UPPER
     Dosage: ORAL
     Route: 048

REACTIONS (8)
  - ABDOMINAL DISCOMFORT [None]
  - CONFUSIONAL STATE [None]
  - DIZZINESS [None]
  - FAECES DISCOLOURED [None]
  - FATIGUE [None]
  - GASTROOESOPHAGEAL REFLUX DISEASE [None]
  - HAEMATOCHEZIA [None]
  - WRONG DRUG ADMINISTERED [None]
